FAERS Safety Report 16127700 (Version 1)
Quarter: 2019Q1

REPORT INFORMATION
  Report Type: Spontaneous
  Country: US (occurrence: US)
  Receive Date: 20190328
  Receipt Date: 20190328
  Transmission Date: 20190418
  Serious: Yes (Other)
  Sender: FDA-Public Use
  Company Number: US-TORRENT-00007837

PATIENT
  Sex: Female
  Weight: 150 kg

DRUGS (2)
  1. CLONAZEPAM. [Concomitant]
     Active Substance: CLONAZEPAM
     Indication: ANXIETY
     Dosage: ONE IN THE MORNING AND ONE AT NIGHT WITH ZOLPIDEM- HAVE BEEN TAKING IT FROM PAST 30 YEARS
  2. ZOLPIDEM [Suspect]
     Active Substance: ZOLPIDEM\ZOLPIDEM TARTRATE
     Indication: INSOMNIA
     Dosage: ONCE AT NIGHT
     Dates: start: 20190315

REACTIONS (5)
  - Drug ineffective [Recovered/Resolved]
  - Product substitution issue [Unknown]
  - Abnormal dreams [Recovered/Resolved]
  - Headache [Recovered/Resolved]
  - Nightmare [Recovered/Resolved]

NARRATIVE: CASE EVENT DATE: 20190315
